FAERS Safety Report 4781101-5 (Version None)
Quarter: 2005Q3

REPORT INFORMATION
  Report Type: 
  Country: None (occurrence: None)
  Receive Date: 20050926
  Receipt Date: 20050914
  Transmission Date: 20060218
  Serious: Yes (Hospitalization, Disabling, Other)
  Sender: FDA-Public Use
  Company Number: 2005016603

PATIENT
  Age: 55 Year
  Sex: Female
  Weight: 72.5755 kg

DRUGS (6)
  1. CELEBREX [Suspect]
     Indication: OSTEOARTHRITIS
     Dosage: 200 (200 MG, 1 IN 1 D), ORAL
     Route: 048
     Dates: start: 20030506, end: 20030909
  2. BLACK COHOSH (CIMICIFUGA RACEMOSA ROOT) [Suspect]
     Indication: MENOPAUSE
     Dosage: 80 MG, ORAL
     Route: 048
     Dates: start: 20030501, end: 20030909
  3. HYDROCHLOROTHIAZIDE [Suspect]
     Indication: FLUID RETENTION
     Dosage: 25 MG (25 MG, 1 D), ORAL
     Route: 048
     Dates: start: 20010601, end: 20030909
  4. HYDROCHLOROTHIAZIDE [Suspect]
     Indication: HYPERTENSION
     Dosage: 25 MG (25 MG, 1 D), ORAL
     Route: 048
     Dates: start: 20010601, end: 20030909
  5. ELTROXIN (LEVOTHYROXINE SODIUM) [Concomitant]
  6. ELOCON [Concomitant]

REACTIONS (4)
  - AUTOIMMUNE HEPATITIS [None]
  - CHRONIC HEPATITIS [None]
  - HIGH DENSITY LIPOPROTEIN DECREASED [None]
  - LYMPHOCYTE COUNT DECREASED [None]
